FAERS Safety Report 8838894 (Version 1)
Quarter: 2012Q4

REPORT INFORMATION
  Report Type: Spontaneous
  Country: US (occurrence: None)
  Receive Date: 20121011
  Receipt Date: 20121011
  Transmission Date: 20130627
  Serious: Yes (Other)
  Sender: FDA-Public Use
  Company Number: None

PATIENT
  Sex: Male
  Weight: 12.25 kg

DRUGS (2)
  1. CEFDINIR [Suspect]
     Indication: NOSE INFECTION NOS
     Dosage: 3.7ml/dose 1/day 10 days
     Dates: start: 20120923
  2. CEFDINIR [Suspect]
     Indication: EAR INFECTION NOS
     Dosage: 3.7ml/dose 1/day 10 days
     Dates: start: 20120923

REACTIONS (10)
  - Ear infection [None]
  - Medication error [None]
  - Disease recurrence [None]
  - Skin discolouration [None]
  - Swelling face [None]
  - Eye swelling [None]
  - Cough [None]
  - Diarrhoea [None]
  - Abdominal discomfort [None]
  - Drug dispensing error [None]
